FAERS Safety Report 21059330 (Version 1)
Quarter: 2022Q3

REPORT INFORMATION
  Report Type: Spontaneous
  Country: US (occurrence: None)
  Receive Date: 20220708
  Receipt Date: 20220708
  Transmission Date: 20221027
  Serious: Yes (Hospitalization, Disabling)
  Sender: FDA-Public Use
  Company Number: None

PATIENT
  Age: 45 Year
  Sex: Male

DRUGS (2)
  1. FINASTERIDE [Suspect]
     Active Substance: FINASTERIDE
     Indication: Alopecia
     Route: 048
     Dates: start: 20180701, end: 20180731
  2. VITAMINS [Concomitant]
     Active Substance: VITAMINS

REACTIONS (8)
  - Headache [None]
  - Dizziness [None]
  - Depression [None]
  - Erectile dysfunction [None]
  - Panic attack [None]
  - Impaired work ability [None]
  - Suicidal ideation [None]
  - Impaired quality of life [None]

NARRATIVE: CASE EVENT DATE: 20180731
